FAERS Safety Report 10563496 (Version 1)
Quarter: 2014Q4

REPORT INFORMATION
  Report Type: Spontaneous
  Country: US (occurrence: None)
  Receive Date: 20141103
  Receipt Date: 20141103
  Transmission Date: 20150529
  Serious: No
  Sender: FDA-Public Use
  Company Number: None

PATIENT
  Age: 42 Year
  Sex: Female
  Weight: 58.97 kg

DRUGS (1)
  1. BUPROPION XL 150 MG [Suspect]
     Active Substance: BUPROPION
     Indication: DEPRESSION
     Dosage: 1 PILL
     Route: 048
     Dates: start: 20140901, end: 20140930

REACTIONS (4)
  - Headache [None]
  - Product substitution issue [None]
  - No therapeutic response [None]
  - Feeling hot [None]

NARRATIVE: CASE EVENT DATE: 20140901
